FAERS Safety Report 10405116 (Version 1)
Quarter: 2014Q3

REPORT INFORMATION
  Report Type: Spontaneous
  Country: US (occurrence: None)
  Receive Date: 20140819
  Receipt Date: 20140819
  Transmission Date: 20150326
  Serious: Yes (Disabling)
  Sender: FDA-Public Use
  Company Number: None

PATIENT
  Age: 67 Year
  Sex: Female
  Weight: 63.5 kg

DRUGS (16)
  1. CIPROFLOXACIN HCL [Suspect]
     Active Substance: CIPROFLOXACIN HYDROCHLORIDE
     Dosage: 1 TABLET TWICE A DAY BY MOUTH
     Route: 048
     Dates: start: 20120806, end: 20120821
  2. RHINOCORT AQUA [Concomitant]
     Active Substance: BUDESONIDE
  3. KRILL OIL [Concomitant]
     Active Substance: DIETARY SUPPLEMENT
  4. DIAZAPAM [Concomitant]
  5. VITAMIN B12 [Concomitant]
     Active Substance: CYANOCOBALAMIN
  6. SUMATRIPTAN [Concomitant]
     Active Substance: SUMATRIPTAN
  7. COSAMIN DS [Concomitant]
  8. CRANBERRY EXTRACT [Concomitant]
  9. AMITRYPTILINE HCL [Concomitant]
  10. ZYRTEC [Concomitant]
     Active Substance: CETIRIZINE HYDROCHLORIDE
  11. CENTRUM SILVER [Concomitant]
     Active Substance: VITAMINS
  12. MAGNESIUM [Concomitant]
     Active Substance: MAGNESIUM
  13. B6 [Concomitant]
     Active Substance: PYRIDOXINE HYDROCHLORIDE
  14. CHINESE GI HERBS [Concomitant]
  15. CALCIUM [Concomitant]
     Active Substance: CALCIUM
  16. VAGIFEM [Concomitant]
     Active Substance: ESTRADIOL

REACTIONS (9)
  - Neuropathy peripheral [None]
  - Insomnia [None]
  - Anxiety [None]
  - Tremor [None]
  - Gastrointestinal disorder [None]
  - Paraesthesia [None]
  - Feeling abnormal [None]
  - Impaired work ability [None]
  - Tinnitus [None]

NARRATIVE: CASE EVENT DATE: 20120911
